FAERS Safety Report 11874720 (Version 1)
Quarter: 2015Q4

REPORT INFORMATION
  Report Type: Report from Study
  Country: US (occurrence: US)
  Receive Date: 20151229
  Receipt Date: 20151229
  Transmission Date: 20160305
  Serious: No
  Sender: FDA-Public Use
  Company Number: PHEH2013US027097

PATIENT
  Sex: Male

DRUGS (4)
  1. TOBI [Suspect]
     Active Substance: TOBRAMYCIN
     Indication: BRONCHITIS CHRONIC
  2. TOBI [Suspect]
     Active Substance: TOBRAMYCIN
     Indication: BRONCHIECTASIS
     Dosage: 300 MG, BID
     Route: 055
     Dates: start: 20130517, end: 20130904
  3. TOBI [Suspect]
     Active Substance: TOBRAMYCIN
     Indication: EMPHYSEMA
  4. TOBI [Suspect]
     Active Substance: TOBRAMYCIN
     Indication: PNEUMONIA

REACTIONS (2)
  - Off label use [Unknown]
  - Chest pain [Unknown]
